FAERS Safety Report 6671108-5 (Version None)
Quarter: 2010Q2

REPORT INFORMATION
  Report Type: 
  Country: None (occurrence: None)
  Receive Date: 20100407
  Receipt Date: 20100401
  Transmission Date: 20101027
  Serious: Yes (Other)
  Sender: FDA-Public Use
  Company Number: PHHY2010US17779

PATIENT
  Sex: Female

DRUGS (10)
  1. COMBIPATCH [Suspect]
     Dosage: 0.05/0.25MG
     Route: 062
     Dates: start: 20090501
  2. COMBIPATCH [Suspect]
     Dosage: 0.05/0.25MG
     Route: 062
  3. ZOLOFT [Concomitant]
  4. DETROL [Concomitant]
  5. ZETIA [Concomitant]
  6. ALLEGRA [Concomitant]
  7. FLUTICASONE PROPIONATE [Concomitant]
  8. OSCAL [Concomitant]
  9. ASPIRIN [Concomitant]
  10. IBUPROFEN [Concomitant]

REACTIONS (6)
  - APPLICATION SITE ERYTHEMA [None]
  - APPLICATION SITE RASH [None]
  - HOT FLUSH [None]
  - KNEE OPERATION [None]
  - MOOD SWINGS [None]
  - PRURITUS [None]
